FAERS Safety Report 9355466 (Version 2)
Quarter: 2013Q3

REPORT INFORMATION
  Report Type: Spontaneous
  Country: BR (occurrence: BR)
  Receive Date: 20130619
  Receipt Date: 20130716
  Transmission Date: 20140515
  Serious: Yes (Hospitalization)
  Sender: FDA-Public Use
  Company Number: BR-PFIZER INC-2013180703

PATIENT
  Age: 60 Year
  Sex: Male
  Weight: 62 kg

DRUGS (3)
  1. CARDURAN XL [Suspect]
     Indication: PROSTATITIS
     Dosage: 4 MG, (1 TABLET) ONCE DAILY
     Route: 048
     Dates: start: 1998, end: 2003
  2. CARDURAN XL [Suspect]
     Indication: PROSTATOMEGALY
  3. MODURETIC [Concomitant]
     Indication: HYPERTENSION
     Dosage: 1 DF, DAILY
     Dates: start: 2003

REACTIONS (1)
  - Drug ineffective [Unknown]
